FAERS Safety Report 14270492 (Version 1)
Quarter: 2017Q4

REPORT INFORMATION
  Report Type: Spontaneous
  Country: US (occurrence: US)
  Receive Date: 20171211
  Receipt Date: 20171211
  Transmission Date: 20180321
  Serious: Yes (Other)
  Sender: FDA-Public Use
  Company Number: US-OTSUKA-DJ20106194

PATIENT

DRUGS (19)
  1. RISPERIDONE. [Suspect]
     Active Substance: RISPERIDONE
     Indication: PARKINSONISM
  2. ATENOLOL. [Concomitant]
     Active Substance: ATENOLOL
     Route: 065
  3. RISPERIDONE. [Suspect]
     Active Substance: RISPERIDONE
     Indication: MAJOR DEPRESSION
     Dosage: UNK
     Dates: start: 20080826, end: 20081021
  4. DOXAZOSIN [Concomitant]
     Active Substance: DOXAZOSIN\DOXAZOSIN MESYLATE
     Route: 065
  5. DONEPEZIL. [Concomitant]
     Active Substance: DONEPEZIL
     Dosage: 5 MG, BID
  6. RISPERIDONE. [Suspect]
     Active Substance: RISPERIDONE
     Indication: TREMOR
  7. PREVACID [Concomitant]
     Active Substance: LANSOPRAZOLE
     Route: 065
  8. RISPERDAL [Suspect]
     Active Substance: RISPERIDONE
     Indication: MAJOR DEPRESSION
     Route: 065
     Dates: start: 20080826, end: 20081021
  9. DEPAKOTE [Suspect]
     Active Substance: DIVALPROEX SODIUM
     Route: 065
     Dates: start: 20091130, end: 20100810
  10. NORVASC [Concomitant]
     Active Substance: AMLODIPINE BESYLATE
     Route: 065
  11. LIPITOR [Concomitant]
     Active Substance: ATORVASTATIN CALCIUM
     Route: 065
  12. ABILIFY [Suspect]
     Active Substance: ARIPIPRAZOLE
     Indication: DEPRESSION
     Route: 048
     Dates: start: 20100527, end: 20100809
  13. DEPAKOTE ER [Concomitant]
     Active Substance: DIVALPROEX SODIUM
     Route: 065
     Dates: end: 20100804
  14. ALENDRONATE [Concomitant]
     Active Substance: ALENDRONATE SODIUM
     Route: 065
  15. AVODART [Concomitant]
     Active Substance: DUTASTERIDE
     Route: 065
  16. ATORVASTATIN [Concomitant]
     Active Substance: ATORVASTATIN
     Dosage: 20 MG, QD
  17. SEROQUEL [Suspect]
     Active Substance: QUETIAPINE FUMARATE
     Route: 065
     Dates: start: 20091019, end: 20100804
  18. QUETIAPINE. [Suspect]
     Active Substance: QUETIAPINE
     Dosage: 200 MG, QD
     Dates: start: 20091019, end: 20100804
  19. ARICEPT [Concomitant]
     Active Substance: DONEPEZIL HYDROCHLORIDE
     Route: 065

REACTIONS (1)
  - Catatonia [Recovered/Resolved]

NARRATIVE: CASE EVENT DATE: 20100804
